FAERS Safety Report 6414504-3 (Version None)
Quarter: 2009Q4

REPORT INFORMATION
  Report Type: 
  Country: None (occurrence: None)
  Receive Date: 20091026
  Receipt Date: 20091014
  Transmission Date: 20100525
  Serious: Yes (Other)
  Sender: FDA-Public Use
  Company Number: GB-GENENTECH-290889

PATIENT
  Sex: Female

DRUGS (1)
  1. BEVACIZUMAB [Suspect]
     Indication: OBESITY
     Dosage: 10 MG, UNK
     Route: 048
     Dates: start: 20060116, end: 20060313

REACTIONS (1)
  - MYOCARDIAL INFARCTION [None]
